FAERS Safety Report 8208394-6 (Version None)
Quarter: 2012Q1

REPORT INFORMATION
  Report Type: 
  Country: None (occurrence: None)
  Receive Date: 20120314
  Receipt Date: 20120305
  Transmission Date: 20120608
  Serious: Yes (Other)
  Sender: FDA-Public Use
  Company Number: US-ASTRAZENECA-2012SE12418

PATIENT
  Age: 70 Year
  Sex: Male

DRUGS (2)
  1. RESTASIS [Suspect]
     Route: 065
  2. CRESTOR [Suspect]
     Route: 048

REACTIONS (3)
  - STRESS [None]
  - EYE HAEMORRHAGE [None]
  - HYPERTENSION [None]
